FAERS Safety Report 10699578 (Version 2)
Quarter: 2015Q1

REPORT INFORMATION
  Report Type: Report from Study
  Country: US (occurrence: US)
  Receive Date: 20150109
  Receipt Date: 20150224
  Transmission Date: 20150721
  Serious: Yes (Hospitalization)
  Sender: FDA-Public Use
  Company Number: US-BIOGENIDEC-2015BI002005

PATIENT
  Sex: Female

DRUGS (3)
  1. TYSABRI [Suspect]
     Active Substance: NATALIZUMAB
     Indication: MULTIPLE SCLEROSIS
     Route: 042
     Dates: start: 20070313, end: 20080821
  2. TYSABRI [Suspect]
     Active Substance: NATALIZUMAB
     Indication: MULTIPLE SCLEROSIS
     Route: 042
     Dates: start: 20090714, end: 20100405
  3. TYSABRI [Suspect]
     Active Substance: NATALIZUMAB
     Indication: MULTIPLE SCLEROSIS
     Route: 042
     Dates: start: 20100816, end: 20131120

REACTIONS (13)
  - General symptom [Unknown]
  - Post procedural complication [Unknown]
  - Drug effect decreased [Unknown]
  - Fall [Recovered/Resolved]
  - Nightmare [Unknown]
  - Abasia [Unknown]
  - Adverse drug reaction [Recovered/Resolved]
  - Urinary incontinence [Unknown]
  - Urinary tract infection [Unknown]
  - Intervertebral disc protrusion [Unknown]
  - Dementia [Unknown]
  - Malaise [Unknown]
  - Tooth infection [Unknown]
